FAERS Safety Report 25843948 (Version 2)
Quarter: 2025Q4

REPORT INFORMATION
  Report Type: Report from Study
  Country: MX (occurrence: MX)
  Receive Date: 20250925
  Receipt Date: 20251006
  Transmission Date: 20260117
  Serious: Yes (Other)
  Sender: NOVARTIS
  Company Number: MX-002147023-NVSC2025MX148828

PATIENT
  Sex: Female
  Weight: 58 kg

DRUGS (2)
  1. EXFORGE HCT [Suspect]
     Active Substance: AMLODIPINE BESYLATE\HYDROCHLOROTHIAZIDE\VALSARTAN
     Indication: Hypertension
     Dosage: 0.5 DOSAGE FORM, QD (AMLODIPINE 5MG, HYDROCHLOROTHIAZIDE 160 MG, VALSARTAN 12.5MG)
     Route: 048
     Dates: start: 2023, end: 20250909
  2. EXFORGE HCT [Suspect]
     Active Substance: AMLODIPINE BESYLATE\HYDROCHLOROTHIAZIDE\VALSARTAN
     Dosage: 1 DOSAGE FORM, QD ((AMLODIPINE 5MG, HYDROCHLOROTHIAZIDE 160 MG, VALSARTAN 12.5MG))
     Route: 048
     Dates: start: 20250910

REACTIONS (2)
  - Diabetes mellitus [Unknown]
  - Wrong technique in product usage process [Recovered/Resolved]

NARRATIVE: CASE EVENT DATE: 20230101
